FAERS Safety Report 13145567 (Version 2)
Quarter: 2018Q1

REPORT INFORMATION
  Report Type: Spontaneous
  Country: GB (occurrence: GB)
  Receive Date: 20170124
  Receipt Date: 20180215
  Transmission Date: 20180508
  Serious: Yes (Hospitalization)
  Sender: FDA-Public Use
  Company Number: GB-SA-2017SA009698

PATIENT
  Age: 77 Year
  Sex: Female

DRUGS (9)
  1. WARFARIN [Concomitant]
     Active Substance: WARFARIN
  2. INDAPAMIDE. [Suspect]
     Active Substance: INDAPAMIDE
     Indication: HYPERTENSION
     Route: 048
     Dates: start: 20180118
  3. MOXONIDINE [Concomitant]
     Active Substance: MOXONIDINE
  4. ADCAL-D3 [Concomitant]
     Active Substance: CALCIUM CARBONATE\CHOLECALCIFEROL
  5. CANDESARTAN. [Concomitant]
     Active Substance: CANDESARTAN
  6. GANFORT [Concomitant]
     Active Substance: BIMATOPROST\TIMOLOL
  7. INDAPAMIDE. [Suspect]
     Active Substance: INDAPAMIDE
     Indication: HYPERTENSION
     Route: 048
     Dates: end: 20161223
  8. BRINZOLAMIDE [Concomitant]
     Active Substance: BRINZOLAMIDE
  9. ALENDRONIC ACID [Concomitant]
     Active Substance: ALENDRONIC ACID
     Route: 065

REACTIONS (2)
  - Hyponatraemia [Recovering/Resolving]
  - Fall [Unknown]
